FAERS Safety Report 15391612 (Version 2)
Quarter: 2018Q4

REPORT INFORMATION
  Report Type: Report from Study
  Country: FR (occurrence: FR)
  Receive Date: 20180917
  Receipt Date: 20181009
  Transmission Date: 20190204
  Serious: Yes (Hospitalization, Other)
  Sender: FDA-Public Use
  Company Number: PHHY2016FR135278

PATIENT
  Age: 44 Year
  Sex: Female
  Weight: 122 kg

DRUGS (13)
  1. COVERAM [Concomitant]
     Active Substance: AMLODIPINE\PERINDOPRIL
     Indication: HYPERTENSION
     Dosage: 10 MG, QD
     Route: 048
     Dates: start: 20151019
  2. SIGNIFOR [Suspect]
     Active Substance: PASIREOTIDE
     Indication: PITUITARY-DEPENDENT CUSHING^S SYNDROME
     Dosage: UNK
     Route: 065
     Dates: start: 20160129, end: 20160209
  3. NOVOMIX [Concomitant]
     Active Substance: INSULIN ASPART
     Indication: DIABETES MELLITUS
     Dosage: 70 IU, QD
     Route: 058
  4. HYDROCORTISONE. [Concomitant]
     Active Substance: HYDROCORTISONE
     Indication: PRODUCT USED FOR UNKNOWN INDICATION
     Route: 065
  5. NEFOPAM [Concomitant]
     Active Substance: NEFOPAM
     Indication: PRODUCT USED FOR UNKNOWN INDICATION
     Route: 065
  6. SIGNIFOR [Suspect]
     Active Substance: PASIREOTIDE
     Dosage: 1.8 OT, BID
     Route: 058
     Dates: start: 20160210, end: 20170314
  7. TRAMADOL. [Concomitant]
     Active Substance: TRAMADOL
     Indication: PAIN
     Dosage: ON DEMAND
     Route: 065
     Dates: start: 20160803
  8. MINIRIN [Concomitant]
     Active Substance: DESMOPRESSIN ACETATE
     Indication: PRODUCT USED FOR UNKNOWN INDICATION
     Route: 065
  9. INSULIN [Concomitant]
     Active Substance: INSULIN NOS
     Indication: PRODUCT USED FOR UNKNOWN INDICATION
     Route: 065
  10. NOVOMIX 30 [Concomitant]
     Active Substance: INSULIN ASPART
     Indication: DIABETES MELLITUS
     Dosage: 90 IU, QD
     Route: 058
     Dates: start: 20160728
  11. PRISTINAMYCIN [Concomitant]
     Active Substance: PRISTINAMYCIN
     Indication: PRODUCT USED FOR UNKNOWN INDICATION
     Route: 065
  12. ROACTEMRA [Concomitant]
     Active Substance: TOCILIZUMAB
     Indication: RHEUMATOID ARTHRITIS
     Dosage: 400 MG, 1 X MONTH
     Route: 042
     Dates: start: 20160831
  13. LEVOTHYROX [Concomitant]
     Active Substance: LEVOTHYROXINE
     Indication: HYPOTHYROIDISM
     Dosage: 125 UG, QD
     Route: 065
     Dates: start: 20160728

REACTIONS (15)
  - Conjunctivitis [Recovered/Resolved]
  - Sinusitis [Recovered/Resolved]
  - Muscular weakness [Unknown]
  - Diabetes mellitus [Recovered/Resolved]
  - Rash erythematous [Unknown]
  - Rheumatoid arthritis [Recovered/Resolved]
  - Tooth abscess [Recovered/Resolved]
  - Toothache [Recovered/Resolved]
  - Treatment failure [Recovered/Resolved]
  - Arthralgia [Unknown]
  - Asthenia [Unknown]
  - Hypoaesthesia [Unknown]
  - Sinusitis [Recovered/Resolved]
  - Hepatic steatosis [Unknown]
  - Hypoglycaemia [Recovered/Resolved]

NARRATIVE: CASE EVENT DATE: 20160226
